FAERS Safety Report 5303382-1 (Version None)
Quarter: 2007Q2

REPORT INFORMATION
  Report Type: 
  Country: None (occurrence: None)
  Receive Date: 20070420
  Receipt Date: 20070412
  Transmission Date: 20071010
  Serious: Yes (Hospitalization)
  Sender: FDA-Public Use
  Company Number: US-JNJFOC-20070400091

PATIENT
  Sex: Male
  Weight: 42.2 kg

DRUGS (27)
  1. TMC125 [Suspect]
     Indication: HIV INFECTION
     Route: 048
  2. PREZISTA [Suspect]
     Route: 048
  3. PREZISTA [Suspect]
     Indication: HIV INFECTION
     Route: 048
  4. FENTANYL [Concomitant]
  5. RITONAVIR [Concomitant]
     Indication: HIV INFECTION
     Route: 048
  6. FUZEON [Concomitant]
     Indication: HIV INFECTION
     Route: 058
  7. TRUVADA [Concomitant]
     Indication: HIV INFECTION
     Route: 048
  8. ZIAGEN [Concomitant]
     Indication: HIV INFECTION
     Route: 048
  9. MK0518 [Concomitant]
     Indication: HIV INFECTION
     Route: 048
  10. AZITHROMYCIN [Concomitant]
  11. ETHAMBUTOL HYDROCHLORIDE [Concomitant]
     Route: 048
  12. RIFABUTIN [Concomitant]
     Route: 048
  13. KDN [Concomitant]
     Route: 048
  14. DILAUDID [Concomitant]
     Indication: PAIN
     Route: 048
  15. NEURONTIN [Concomitant]
     Route: 048
  16. WELLBUTRIN [Concomitant]
     Route: 048
  17. EFFEXOR [Concomitant]
     Route: 048
  18. AVANDIA [Concomitant]
     Route: 048
  19. DAPSONE [Concomitant]
     Route: 048
  20. ACYCLOVIR [Concomitant]
     Route: 048
  21. FLUCONAZOLE [Concomitant]
     Route: 048
  22. TESTOSTERONE [Concomitant]
     Route: 030
  23. ZYRTEC [Concomitant]
     Route: 048
  24. NASONEX [Concomitant]
     Route: 045
  25. VALIUM [Concomitant]
     Indication: ANXIETY
     Route: 048
  26. COMPAZINE [Concomitant]
     Indication: VOMITING
  27. COMPAZINE [Concomitant]
     Indication: NAUSEA

REACTIONS (2)
  - DEEP VEIN THROMBOSIS [None]
  - HODGKIN'S DISEASE [None]
